FAERS Safety Report 12876211 (Version 1)
Quarter: 2016Q4

REPORT INFORMATION
  Report Type: Spontaneous
  Country: US (occurrence: US)
  Receive Date: 20161021
  Receipt Date: 20161021
  Transmission Date: 20170207
  Serious: No
  Sender: FDA-Public Use
  Company Number: None

PATIENT
  Age: 72 Year
  Sex: Male
  Weight: 71.28 kg

DRUGS (1)
  1. SILDENAFIL CITRATE. [Suspect]
     Active Substance: SILDENAFIL CITRATE
     Indication: ERECTILE DYSFUNCTION
     Dosage: 20MG 5 TABS 1 HOUR BEFORE ACTIVITY ORAL
     Route: 048
     Dates: start: 20140910, end: 20150928

REACTIONS (2)
  - Flushing [None]
  - Headache [None]

NARRATIVE: CASE EVENT DATE: 20150928
